FAERS Safety Report 9536771 (Version 1)
Quarter: 2013Q3

REPORT INFORMATION
  Report Type: Spontaneous
  Country: FR (occurrence: FR)
  Receive Date: 20130919
  Receipt Date: 20130919
  Transmission Date: 20140515
  Serious: Yes (Life-Threatening, Hospitalization)
  Sender: FDA-Public Use
  Company Number: FR-ASTRAZENECA-2013SE69807

PATIENT
  Age: 32276 Day
  Sex: Female

DRUGS (7)
  1. INEXIUM [Suspect]
     Dosage: LONG LASTING TREATMENT
     Route: 048
     Dates: end: 20130731
  2. NORSET [Interacting]
     Route: 048
     Dates: start: 20130627, end: 20130731
  3. OLMETEC [Interacting]
     Indication: HYPERTENSION
     Route: 048
     Dates: end: 20130731
  4. ALDACTONE [Interacting]
     Indication: HYPERTENSION
     Route: 048
     Dates: end: 20130731
  5. MODOPAR [Concomitant]
     Dosage: LONG LASTING TREATMENT
  6. ISKEDYL [Concomitant]
     Dosage: LONG LASTING TREATMENT
  7. TIORFAN [Concomitant]
     Indication: DIARRHOEA

REACTIONS (4)
  - Drug interaction [Unknown]
  - Renal failure acute [Recovered/Resolved]
  - Hyperkalaemia [Unknown]
  - Hyponatraemia [Recovered/Resolved]
